FAERS Safety Report 9995876 (Version 3)
Quarter: 2014Q2

REPORT INFORMATION
  Report Type: Spontaneous
  Country: JP (occurrence: JP)
  Receive Date: 20140311
  Receipt Date: 20140604
  Transmission Date: 20141212
  Serious: Yes (Other)
  Sender: FDA-Public Use
  Company Number: PHHY2014JP010214

PATIENT
  Age: 32 Year
  Sex: Female
  Weight: 73 kg

DRUGS (3)
  1. NEORAL [Suspect]
     Indication: PUSTULAR PSORIASIS
     Dosage: 100 MG, QD
     Route: 048
     Dates: start: 20090724, end: 20140110
  2. HUMIRA [Suspect]
     Indication: PSORIASIS
     Dosage: 40 MG, ONCE EVERY SECOND WEEK
     Route: 058
     Dates: start: 20120817
  3. XYZAL [Suspect]
     Indication: DERMATITIS ATOPIC
     Dosage: 5 MG, BID
     Route: 048
     Dates: start: 20120423

REACTIONS (2)
  - Genital haemorrhage [Unknown]
  - Maternal exposure during pregnancy [Unknown]
